FAERS Safety Report 18270828 (Version 1)
Quarter: 2020Q3

REPORT INFORMATION
  Report Type: Report from Study
  Country: KE (occurrence: KE)
  Receive Date: 20200915
  Receipt Date: 20200915
  Transmission Date: 20201103
  Serious: Yes (Hospitalization)
  Sender: FDA-Public Use
  Company Number: KE-SEATTLE GENETICS-2020SGN03423

PATIENT
  Age: 15 Year
  Sex: Male

DRUGS (1)
  1. BRENTUXIMAB VEDOTIN [Suspect]
     Active Substance: BRENTUXIMAB VEDOTIN
     Indication: HODGKIN^S DISEASE REFRACTORY
     Dosage: 54 MILLIGRAM, Q3WEEKS
     Route: 042
     Dates: start: 20200731

REACTIONS (2)
  - Off label use [Unknown]
  - Varicella [Unknown]

NARRATIVE: CASE EVENT DATE: 20200731
